FAERS Safety Report 8922672 (Version 1)
Quarter: 2012Q4

REPORT INFORMATION
  Report Type: 
  Country: US (occurrence: US)
  Receive Date: 20121125
  Receipt Date: 20121125
  Transmission Date: 20130627
  Serious: Yes (Other)
  Sender: FDA-Public Use
  Company Number: US-BRISTOL-MYERS SQUIBB COMPANY-17126327

PATIENT
  Age: 71 Year
  Sex: Female
  Weight: 56.69 kg

DRUGS (1)
  1. YERVOY [Suspect]
     Indication: MALIGNANT MELANOMA
     Dosage: last:03May12.
     Dates: start: 20120322

REACTIONS (1)
  - Pelvic neoplasm [Unknown]
